FAERS Safety Report 10239327 (Version 1)
Quarter: 2014Q2

REPORT INFORMATION
  Report Type: Spontaneous
  Country: CN (occurrence: CN)
  Receive Date: 20140616
  Receipt Date: 20140616
  Transmission Date: 20141212
  Serious: Yes (Hospitalization)
  Sender: FDA-Public Use
  Company Number: CN-PFIZER INC-2014160479

PATIENT
  Age: 56 Year
  Sex: Female
  Weight: 62 kg

DRUGS (3)
  1. PHARMORUBICIN [Suspect]
     Indication: BREAST CANCER
     Dosage: 50 MG, 1X/DAY
     Route: 041
     Dates: start: 20130929, end: 20130929
  2. PHARMORUBICIN [Suspect]
     Dosage: 50 MG, 1X/DAY
     Route: 041
     Dates: start: 20130930, end: 20130930
  3. CYCLOPHOSPHAMIDE [Suspect]
     Indication: BREAST CANCER
     Dosage: 1 G, 1X/DAY
     Route: 041
     Dates: start: 20130929, end: 20130929

REACTIONS (1)
  - Hepatic function abnormal [Not Recovered/Not Resolved]
